FAERS Safety Report 5547735-5 (Version None)
Quarter: 2007Q4

REPORT INFORMATION
  Report Type: 
  Country: None (occurrence: None)
  Receive Date: 20071211
  Receipt Date: 20071126
  Transmission Date: 20080405
  Serious: Yes (Other)
  Sender: FDA-Public Use
  Company Number: DE-GENENTECH-251836

PATIENT
  Sex: Female
  Weight: 62 kg

DRUGS (4)
  1. XOLAIR [Suspect]
     Indication: ASTHMA
     Dosage: 150 MG, 1/MONTH
     Route: 058
     Dates: start: 20070501
  2. SINGULAIR [Concomitant]
     Indication: DRUG USE FOR UNKNOWN INDICATION
  3. SYMBICORT [Concomitant]
     Indication: DRUG USE FOR UNKNOWN INDICATION
  4. THEOPHYLLINE [Concomitant]
     Indication: DRUG USE FOR UNKNOWN INDICATION

REACTIONS (1)
  - SELF INJURIOUS BEHAVIOUR [None]
